FAERS Safety Report 7682535-1 (Version None)
Quarter: 2011Q3

REPORT INFORMATION
  Report Type: 
  Country: None (occurrence: None)
  Receive Date: 20110815
  Receipt Date: 20110810
  Transmission Date: 20111222
  Serious: Yes (Death)
  Sender: FDA-Public Use
  Company Number: US-SHIRE-ALL1-2011-02688

PATIENT
  Age: 50 Year
  Sex: Male

DRUGS (1)
  1. FOSRENOL [Suspect]
     Indication: HYPERPHOSPHATAEMIA
     Dosage: 4000 MG, 1X/DAY:QD (FOUR 1000 MG TABLETS PER DAY)
     Route: 048
     Dates: start: 20101015, end: 20110621

REACTIONS (1)
  - DEATH [None]
